FAERS Safety Report 4882951-7 (Version None)
Quarter: 2006Q1

REPORT INFORMATION
  Report Type: 
  Country: None (occurrence: None)
  Receive Date: 20060118
  Receipt Date: 20051118
  Transmission Date: 20060701
  Serious: Yes (Other)
  Sender: FDA-Public Use
  Company Number: NZ-BOEHRINGER INGELHEIM PHARMACEUTICALS, INC.-2005-BP-20950AU

PATIENT
  Sex: Female
  Weight: 80 kg

DRUGS (6)
  1. SPIRIVA [Suspect]
     Indication: CHRONIC OBSTRUCTIVE PULMONARY DISEASE
     Route: 055
     Dates: start: 20050501
  2. FLIXOTIDE [Concomitant]
  3. SEREVENT [Concomitant]
  4. VENTOLIN [Concomitant]
  5. LISINOPRIL [Concomitant]
  6. LOSEC (OMEPRAZOLE) [Concomitant]

REACTIONS (2)
  - NAUSEA [None]
  - PHARYNGOLARYNGEAL PAIN [None]
